FAERS Safety Report 8243788 (Version 4)
Quarter: 2016Q1

REPORT INFORMATION
  Report Type: Spontaneous
  Country: CA (occurrence: CA)
  Receive Date: 20111114
  Receipt Date: 20160219
  Transmission Date: 20160526
  Serious: Yes (Other)
  Sender: FDA-Public Use
  Company Number: CA-ROCHE-1011735

PATIENT
  Age: 63 Year
  Sex: Female

DRUGS (2)
  1. XOLAIR [Suspect]
     Active Substance: OMALIZUMAB
     Route: 058
     Dates: start: 20101201
  2. XOLAIR [Suspect]
     Active Substance: OMALIZUMAB
     Indication: ASTHMA
     Route: 058
     Dates: start: 20101129

REACTIONS (7)
  - Productive cough [Unknown]
  - Intracranial aneurysm [Unknown]
  - Hypertension [Unknown]
  - Influenza [Recovered/Resolved]
  - Nasal congestion [Unknown]
  - Nasopharyngitis [Unknown]
  - Dyspnoea [Not Recovered/Not Resolved]

NARRATIVE: CASE EVENT DATE: 201110
